FAERS Safety Report 18749434 (Version 3)
Quarter: 2021Q1

REPORT INFORMATION
  Report Type: Spontaneous
  Country: CD (occurrence: CD)
  Receive Date: 20210116
  Receipt Date: 20210128
  Transmission Date: 20210419
  Serious: Yes (Death, Other)
  Sender: FDA-Public Use
  Company Number: NVSC2021CD009444

PATIENT
  Sex: Male

DRUGS (2)
  1. CYTOSINE ARABINOSIDE [Concomitant]
     Active Substance: CYTARABINE
     Indication: PRODUCT USED FOR UNKNOWN INDICATION
     Route: 065
  2. GLIVEC [Suspect]
     Active Substance: IMATINIB MESYLATE
     Indication: CHRONIC MYELOID LEUKAEMIA
     Dosage: 600 MG (6 X 100MG TABLETS)
     Route: 065

REACTIONS (8)
  - Chronic myeloid leukaemia [Unknown]
  - Blast crisis in myelogenous leukaemia [Unknown]
  - Malignant neoplasm progression [Unknown]
  - Thrombocytopenia [Unknown]
  - Anaemia [Unknown]
  - Death [Fatal]
  - Treatment failure [Unknown]
  - Acute leukaemia [Unknown]
